FAERS Safety Report 6125109-6 (Version None)
Quarter: 2009Q1

REPORT INFORMATION
  Report Type: 
  Country: None (occurrence: None)
  Receive Date: 20090317
  Receipt Date: 20090305
  Transmission Date: 20090719
  Serious: Yes (Hospitalization)
  Sender: FDA-Public Use
  Company Number: GXKR2009US02715

PATIENT
  Age: 75 Year
  Sex: Female
  Weight: 83.2 kg

DRUGS (17)
  1. LOVASTATIN [Suspect]
     Dosage: 40 MG, AT BET TIME (PAST 12 YEARS)
  2. SITAGLIPTIN (SITAGLIPTIN) [Suspect]
     Indication: DIABETES MELLITUS
     Dosage: 100 MG/DAY
  3. DILTIAZEM [Concomitant]
  4. GLIMEPIRIDE [Concomitant]
  5. LEVOTHYROXINE SODIUM [Concomitant]
  6. HYDROCHLOROTHIAZIDE [Concomitant]
  7. METOCLOPRAMIDE [Concomitant]
  8. ALENDRONATE SODIUM [Concomitant]
  9. ESOMEPRAZOLE MAGNESIUM [Concomitant]
  10. TIOTROPIUM (TIOTROPIUM) [Concomitant]
  11. MULTIVITAMINS (ASCORBIC ACID, ERGOCALCIFEROL, FOLIC ACID, NICOTINAMIDE [Concomitant]
  12. HYDROMORPHONE HCL [Concomitant]
  13. METHOCARBAMOL [Concomitant]
  14. PROPOXYPHENE (PROPOXYPHENE) [Concomitant]
  15. ACETAMINOPHEN [Concomitant]
  16. ROSIGLITAZONE [Concomitant]
  17. PIOGLITAZONE HCL [Concomitant]

REACTIONS (4)
  - ANXIETY [None]
  - BLOOD PRESSURE INCREASED [None]
  - DRUG INTERACTION [None]
  - RHABDOMYOLYSIS [None]
